FAERS Safety Report 9963627 (Version 1)
Quarter: 2014Q1

REPORT INFORMATION
  Report Type: Report from Study
  Country: US (occurrence: US)
  Receive Date: 20140305
  Receipt Date: 20140305
  Transmission Date: 20141002
  Serious: Yes (Other)
  Sender: FDA-Public Use
  Company Number: US-ABBVIE-13P-163-1117354-00

PATIENT
  Age: 72 Year
  Sex: Female

DRUGS (9)
  1. HUMIRA [Suspect]
     Indication: RHEUMATOID ARTHRITIS
  2. PLAQUENIL [Concomitant]
     Indication: PRODUCT USED FOR UNKNOWN INDICATION
  3. PREDNISONE [Concomitant]
     Indication: PRODUCT USED FOR UNKNOWN INDICATION
  4. RELAFEN [Concomitant]
     Indication: RHEUMATOID ARTHRITIS
  5. METHOTREXATE [Concomitant]
     Indication: RHEUMATOID ARTHRITIS
     Dosage: 8 PILLS WEEK
  6. ANASTROZOLE [Concomitant]
     Indication: BREAST CANCER
  7. FOLIC ACID [Concomitant]
     Indication: PRODUCT USED FOR UNKNOWN INDICATION
  8. MULTIVITAMIN [Concomitant]
     Indication: VITAMIN SUPPLEMENTATION
  9. CALCIUM [Concomitant]
     Indication: MINERAL SUPPLEMENTATION

REACTIONS (6)
  - Breast cancer [Recovering/Resolving]
  - Intervertebral disc protrusion [Unknown]
  - Neuropathy peripheral [Unknown]
  - Insomnia [Unknown]
  - Back pain [Unknown]
  - Herpes zoster [Recovering/Resolving]
